FAERS Safety Report 9774711 (Version 2)
Quarter: 2013Q4

REPORT INFORMATION
  Report Type: Spontaneous
  Country: US (occurrence: US)
  Receive Date: 20131220
  Receipt Date: 20131220
  Transmission Date: 20140711
  Serious: No
  Sender: FDA-Public Use
  Company Number: US-GALDERMA-US-GDP-12415419

PATIENT
  Age: 73 Year
  Sex: Female

DRUGS (1)
  1. METROGEL [Suspect]
     Indication: ROSACEA
     Dosage: 0.75%
     Route: 061

REACTIONS (2)
  - Dry skin [Unknown]
  - Expired drug administered [Not Recovered/Not Resolved]
